FAERS Safety Report 7018433-6 (Version None)
Quarter: 2010Q3

REPORT INFORMATION
  Report Type: 
  Country: None (occurrence: None)
  Receive Date: 20100924
  Receipt Date: 20100910
  Transmission Date: 20110219
  Serious: Yes (Other)
  Sender: FDA-Public Use
  Company Number: 201009028

PATIENT
  Age: 36 Year
  Sex: Male

DRUGS (1)
  1. TESTOSTERONE [Suspect]
     Indication: BLOOD TESTOSTERONE DECREASED

REACTIONS (9)
  - ANGIOFIBROMA [None]
  - DISEASE RECURRENCE [None]
  - HAEMORRHAGE [None]
  - HEADACHE [None]
  - INFLAMMATION [None]
  - NASAL SEPTUM DEVIATION [None]
  - NEOPLASM [None]
  - OEDEMA MUCOSAL [None]
  - SCAR [None]
